FAERS Safety Report 6384061-9 (Version None)
Quarter: 2009Q3

REPORT INFORMATION
  Report Type: 
  Country: None (occurrence: None)
  Receive Date: 20090928
  Receipt Date: 20090922
  Transmission Date: 20100115
  Serious: Yes (Life-Threatening, Hospitalization, Other)
  Sender: FDA-Public Use
  Company Number: 2007-154406-NL

PATIENT
  Age: 16 Year
  Sex: Female

DRUGS (1)
  1. NUVARING [Suspect]
     Dates: start: 20060101, end: 20070120

REACTIONS (11)
  - ABDOMINAL PAIN [None]
  - ACUTE RESPIRATORY DISTRESS SYNDROME [None]
  - ARTHRALGIA [None]
  - HEADACHE [None]
  - MENINGISM [None]
  - OOPHORITIS [None]
  - PAIN [None]
  - PERITONITIS [None]
  - PYREXIA [None]
  - SALPINGO-OOPHORITIS [None]
  - TOXIC SHOCK SYNDROME STREPTOCOCCAL [None]
